FAERS Safety Report 6955846-2 (Version None)
Quarter: 2010Q3

REPORT INFORMATION
  Report Type: 
  Country: None (occurrence: None)
  Receive Date: 20100830
  Receipt Date: 20100511
  Transmission Date: 20110219
  Serious: No
  Sender: FDA-Public Use
  Company Number: US-AMGEN-KDL411573

PATIENT
  Sex: Female

DRUGS (3)
  1. NPLATE [Suspect]
     Indication: IDIOPATHIC THROMBOCYTOPENIC PURPURA
     Dates: start: 20090901
  2. PREDNISONE [Concomitant]
  3. UNSPECIFIED STEROIDS [Concomitant]

REACTIONS (12)
  - ASTHENIA [None]
  - DYSGEUSIA [None]
  - GAIT DISTURBANCE [None]
  - HYPOPHAGIA [None]
  - HYPOTENSION [None]
  - INCORRECT DOSE ADMINISTERED [None]
  - LYMPHADENOPATHY [None]
  - NAUSEA [None]
  - PAIN IN EXTREMITY [None]
  - PLATELET COUNT INCREASED [None]
  - RASH [None]
  - WEIGHT DECREASED [None]
